FAERS Safety Report 11913324 (Version 4)
Quarter: 2016Q1

REPORT INFORMATION
  Report Type: Report from Study
  Country: CA (occurrence: CA)
  Receive Date: 20160113
  Receipt Date: 20160128
  Transmission Date: 20160526
  Serious: Yes (Hospitalization)
  Sender: FDA-Public Use
  Company Number: CA-ABBVIE-16K-028-1534519-00

PATIENT
  Age: 36 Year
  Sex: Female

DRUGS (2)
  1. HUMIRA [Suspect]
     Active Substance: ADALIMUMAB
     Indication: CROHN^S DISEASE
     Dosage: FIRST LOADING DOSE
     Route: 058
     Dates: start: 20151223, end: 20151223
  2. HUMIRA [Suspect]
     Active Substance: ADALIMUMAB
     Route: 058
     Dates: start: 20160107

REACTIONS (5)
  - Swelling face [Not Recovered/Not Resolved]
  - Swollen tongue [Unknown]
  - Small intestinal obstruction [Recovered/Resolved]
  - Nasal congestion [Unknown]
  - Inflammation [Unknown]

NARRATIVE: CASE EVENT DATE: 201601
